FAERS Safety Report 22123403 (Version 8)
Quarter: 2023Q2

REPORT INFORMATION
  Report Type: Spontaneous
  Country: US (occurrence: US)
  Receive Date: 20230322
  Receipt Date: 20230617
  Transmission Date: 20230722
  Serious: No
  Sender: FDA-Public Use
  Company Number: US-UNITED THERAPEUTICS-UNT-2023-007773

PATIENT
  Age: 65 Year
  Sex: Male
  Weight: 109.3 kg

DRUGS (8)
  1. TYVASO [Suspect]
     Active Substance: TREPROSTINIL
     Indication: Pulmonary arterial hypertension
     Dosage: 18 ?G, QID
     Dates: start: 202303, end: 202303
  2. TYVASO [Suspect]
     Active Substance: TREPROSTINIL
     Dosage: 12 ?G, QID
     Dates: start: 202303
  3. TYVASO [Suspect]
     Active Substance: TREPROSTINIL
     Dosage: 18 ?G, QID
     Dates: start: 2023
  4. TYVASO [Suspect]
     Active Substance: TREPROSTINIL
     Dosage: 36 ?G, QID
     Dates: start: 2023
  5. TYVASO [Suspect]
     Active Substance: TREPROSTINIL
     Dosage: 30 ?G, QID (DOSE DECREAED)
     Dates: start: 2023
  6. TYVASO [Suspect]
     Active Substance: TREPROSTINIL
     Dosage: UNK
     Dates: start: 2023
  7. TYVASO [Suspect]
     Active Substance: TREPROSTINIL
     Dosage: UNK
     Dates: start: 20230313
  8. OFEV [Concomitant]
     Active Substance: NINTEDANIB
     Indication: Product used for unknown indication
     Dosage: UNK
     Route: 065

REACTIONS (13)
  - Cough [Not Recovered/Not Resolved]
  - Dyspnoea exertional [Not Recovered/Not Resolved]
  - Hypotension [Unknown]
  - Chills [Unknown]
  - Sweating fever [Unknown]
  - Pallor [Unknown]
  - Urinary tract infection [Unknown]
  - Blood urine present [Unknown]
  - Diarrhoea [Unknown]
  - Constipation [Unknown]
  - Dizziness [Unknown]
  - Dyspnoea [Recovering/Resolving]
  - Product dose omission issue [Unknown]

NARRATIVE: CASE EVENT DATE: 20230301
